FAERS Safety Report 5179058-0 (Version None)
Quarter: 2006Q4

REPORT INFORMATION
  Report Type: 
  Country: None (occurrence: None)
  Receive Date: 20061219
  Receipt Date: 20060810
  Transmission Date: 20070319
  Serious: Yes (Other)
  Sender: FDA-Public Use
  Company Number: GB-SHR-GB-2006-022698

PATIENT
  Age: 20 Year
  Sex: Female
  Weight: 40.91 kg

DRUGS (1)
  1. YASMIN [Suspect]
     Indication: ORAL CONTRACEPTION
     Dosage: 1 TAB(S), UNK
     Route: 048
     Dates: start: 20060222, end: 20060811

REACTIONS (5)
  - DIZZINESS [None]
  - DYSPNOEA EXERTIONAL [None]
  - PALPITATIONS [None]
  - SINUS ARRHYTHMIA [None]
  - TACHYCARDIA [None]
